FAERS Safety Report 5306749-0 (Version None)
Quarter: 2007Q2

REPORT INFORMATION
  Report Type: 
  Country: None (occurrence: None)
  Receive Date: 20070418
  Receipt Date: 20070404
  Transmission Date: 20071010
  Serious: Yes (Hospitalization)
  Sender: FDA-Public Use
  Company Number: 2006BL005879

PATIENT
  Age: 64 Year
  Sex: Male

DRUGS (14)
  1. PILOCARPINE HYDROCHLORIDE [Suspect]
     Indication: GLAUCOMA
     Dosage: OPHTHALMIC
     Route: 047
     Dates: start: 19981029, end: 20050411
  2. PILOCARPINE HYDROCHLORIDE [Suspect]
     Indication: GLAUCOMA
     Dosage: OPHTHALMIC
     Route: 047
     Dates: start: 20050503, end: 20051208
  3. PILOCARPINE HYDROCHLORIDE [Suspect]
     Indication: GLAUCOMA
     Dosage: OPHTHALMIC
     Route: 047
     Dates: start: 20060904, end: 20060905
  4. NORMOGLAUCON AUGENTROPFEN (PILOCARPINE HYDROCHLORIDE/METIPRANOLOL HYDR [Suspect]
     Indication: GLAUCOMA
     Dosage: OPHTHALMIC
     Route: 047
     Dates: start: 20051209, end: 20060329
  5. NORMOGLAUCON AUGENTROPFEN (PILOCARPINE HYDROCHLORIDE/METIPRANOLOL HYDR [Suspect]
     Indication: GLAUCOMA
     Dosage: OPHTHALMIC
     Route: 047
     Dates: start: 20060425, end: 20060430
  6. NORMOGLAUCON AUGENTROPFEN (PILOCARPINE HYDROCHLORIDE/METIPRANOLOL HYDR [Suspect]
     Indication: GLAUCOMA
     Dosage: OPHTHALMIC
     Route: 047
     Dates: start: 20060501, end: 20060501
  7. TRAVATAN [Suspect]
     Indication: GLAUCOMA
     Dosage: OPHTHALMIC
     Route: 047
     Dates: start: 20050412, end: 20050502
  8. NORMOGLAUCON MITE AUGENTROPFEN (PILOCARPINE HYDROCHLORIDE/METIPRANOLOL [Suspect]
     Indication: GLAUCOMA
     Dosage: OPHTHALMIC
     Route: 047
     Dates: start: 20060330, end: 20060424
  9. MESTINON/CAN/ [Concomitant]
  10. METHYLPREDNISOLONE [Concomitant]
  11. NEXIUM [Concomitant]
  12. VIGANTOLETTEN [Concomitant]
  13. CALCIUM CHLORIDE [Concomitant]
  14. CORTISONE ACETATE [Concomitant]

REACTIONS (7)
  - DYSPHAGIA [None]
  - DYSPNOEA [None]
  - INTRAOCULAR PRESSURE INCREASED [None]
  - MYASTHENIA GRAVIS [None]
  - OCULAR MYASTHENIA [None]
  - SPEECH DISORDER [None]
  - TREMOR [None]
